FAERS Safety Report 23088708 (Version 2)
Quarter: 2024Q1

REPORT INFORMATION
  Report Type: Other
  Country: US (occurrence: US)
  Receive Date: 20231020
  Receipt Date: 20240103
  Transmission Date: 20240409
  Serious: Yes (Other)
  Sender: FDA-Public Use
  Company Number: None

PATIENT

DRUGS (12)
  1. ONCASPAR [Suspect]
     Active Substance: PEGASPARGASE
     Indication: B-cell type acute leukaemia
     Dosage: 2500 IU/M2 ON DAYS 1, 28 (MAXIMUM DOSE OF 3750 IU)
     Route: 065
     Dates: start: 201912, end: 202001
  2. VINCRISTINE SULFATE [Suspect]
     Active Substance: VINCRISTINE SULFATE
     Indication: B-cell type acute leukaemia
     Dosage: 1.5 MG/M2 ON DAYS 1, 8, 15 AND 22 (MAXIMUM DOSE OF 2 MG)
     Route: 042
     Dates: start: 201912, end: 202001
  3. DAUNORUBICIN [Suspect]
     Active Substance: DAUNORUBICIN
     Indication: B-cell type acute leukaemia
     Dosage: 25 MG/M2, ON DAYS 1, 8, 15 AND 22
     Route: 042
     Dates: start: 201912, end: 202001
  4. PREDNISONE [Suspect]
     Active Substance: PREDNISONE
     Indication: B-cell type acute leukaemia
     Dosage: 100 MG, UNK
     Route: 048
     Dates: start: 201912, end: 202001
  5. SULFAMETHOXAZOLE AND TRIMETHOPRIM [Concomitant]
     Active Substance: SULFAMETHOXAZOLE\TRIMETHOPRIM
     Indication: Infection prophylaxis
     Dosage: UNK
     Route: 065
  6. FLUCONAZOLE [Concomitant]
     Active Substance: FLUCONAZOLE
     Indication: Infection prophylaxis
     Dosage: UNK
     Route: 065
  7. ACYCLOVIR [Concomitant]
     Active Substance: ACYCLOVIR
     Indication: Infection prophylaxis
     Dosage: UNK
     Route: 065
  8. ALLOPURINOL [Concomitant]
     Active Substance: ALLOPURINOL
     Indication: Infection prophylaxis
     Dosage: UNK
     Route: 065
  9. ENOXAPARIN SODIUM [Concomitant]
     Active Substance: ENOXAPARIN SODIUM
     Indication: Infection prophylaxis
     Dosage: UNK
     Route: 065
  10. PANTOPRAZOLE [Concomitant]
     Active Substance: PANTOPRAZOLE
     Indication: Infection prophylaxis
     Dosage: UNK
     Route: 065
  11. METHOTREXATE [Concomitant]
     Active Substance: METHOTREXATE
     Indication: Prophylaxis
     Dosage: UNK
     Route: 065
  12. CYTARABINE [Concomitant]
     Active Substance: CYTARABINE
     Indication: Prophylaxis
     Dosage: UNK
     Route: 065

REACTIONS (1)
  - Drug ineffective [Recovered/Resolved]

NARRATIVE: CASE EVENT DATE: 20191201
